FAERS Safety Report 8921169 (Version 1)
Quarter: 2012Q4

REPORT INFORMATION
  Report Type: 
  Country: GB (occurrence: GB)
  Receive Date: 20121121
  Receipt Date: 20121121
  Transmission Date: 20130627
  Serious: Yes (Other)
  Sender: FDA-Public Use
  Company Number: GB-WATSON-2012-19744

PATIENT
  Age: 68 Year
  Sex: Male
  Weight: 118 kg

DRUGS (1)
  1. MIRTAZAPINE (UNKNOWN) [Suspect]
     Indication: DEPRESSION
     Dosage: 15mg - 45mg per day
     Route: 048
     Dates: start: 20120415, end: 20120930

REACTIONS (3)
  - Aggression [Recovering/Resolving]
  - Appetite disorder [Recovering/Resolving]
  - Depression [Recovering/Resolving]
